FAERS Safety Report 24724105 (Version 4)
Quarter: 2025Q4

REPORT INFORMATION
  Report Type: Report from Study
  Country: US (occurrence: None)
  Receive Date: 20241211
  Receipt Date: 20251103
  Transmission Date: 20260117
  Serious: Yes (Hospitalization, Other)
  Sender: UCB
  Company Number: US-UCBSA-2024061103

PATIENT
  Age: 28 Year
  Weight: 84.461 kg

DRUGS (7)
  1. FENFLURAMINE [Suspect]
     Active Substance: FENFLURAMINE
     Indication: Severe myoclonic epilepsy of infancy
     Dosage: 4 MILLILITER, 2X/DAY (BID)
  2. FENFLURAMINE [Suspect]
     Active Substance: FENFLURAMINE
     Indication: Lennox-Gastaut syndrome
     Dosage: 4 MILLILITER, 2X/DAY (BID) (MAINTENANCE DOSE)
  3. FENFLURAMINE [Suspect]
     Active Substance: FENFLURAMINE
     Dosage: 3.7 ML BID FOR 7 DAYS THEN INCREASE TO 3.9 ML BID FOR 7 DAYS
  4. BRIVIACT [Suspect]
     Active Substance: BRIVARACETAM
     Indication: Product used for unknown indication
     Dosage: 50 MILLIGRAM, 2X/DAY (BID)
  5. XCOPRI [Concomitant]
     Active Substance: CENOBAMATE
     Indication: Product used for unknown indication
     Dosage: 200 MILLIGRAM, 2X/DAY (BID)
  6. CLONAZEPAM [Concomitant]
     Active Substance: CLONAZEPAM
     Indication: Seizure
     Dosage: 1 MILLIGRAM, PRN
  7. VALTOCO [Concomitant]
     Active Substance: DIAZEPAM
     Indication: Seizure
     Dosage: 20 MILLIGRAMS (1 SPRAY CONTAINS 10 MILLIGRAM, 1 SPRAY (10 MG) TO EACH OF THE NOSTRIL (TOTAL 20 MG) FOR SEIZURE MORE THAN 2 MINUTES, A SECOND DOSE, WHEN REQUIRED, MAY BE ADMINISTERED AFTER AT LEAST 4 HOURS AFTER THE INITIAL DOSE. IF THE SECOND DOSE IS TO BE ADMINISTERE)

REACTIONS (5)
  - Cardiac disorder [Not Recovered/Not Resolved]
  - Seizure [Unknown]
  - Cardiomyopathy [Unknown]
  - Treatment failure [Unknown]
  - Product use issue [Unknown]
